FAERS Safety Report 10189630 (Version 1)
Quarter: 2014Q2

REPORT INFORMATION
  Report Type: Spontaneous
  Country: US (occurrence: US)
  Receive Date: 20140522
  Receipt Date: 20140522
  Transmission Date: 20141212
  Serious: Yes (Hospitalization)
  Sender: FDA-Public Use
  Company Number: US-SA-2014SA016462

PATIENT
  Age: 84 Year
  Sex: Male

DRUGS (2)
  1. LANTUS SOLOSTAR [Suspect]
     Dosage: DOSE: 20-24 UNITS.?FROM: 5 YEARS
     Route: 058
  2. SOLOSTAR [Concomitant]

REACTIONS (2)
  - Hypoglycaemia [Recovered/Resolved]
  - Nasopharyngitis [Unknown]
